FAERS Safety Report 24014120 (Version 1)
Quarter: 2024Q2

REPORT INFORMATION
  Report Type: Spontaneous
  Country: US (occurrence: US)
  Receive Date: 20240626
  Receipt Date: 20240626
  Transmission Date: 20240715
  Serious: No
  Sender: FDA-Public Use
  Company Number: US-MACLEODS PHARMA-MAC2024047801

PATIENT

DRUGS (1)
  1. HYDROCHLOROTHIAZIDE\LOSARTAN [Suspect]
     Active Substance: HYDROCHLOROTHIAZIDE\LOSARTAN
     Indication: Blood pressure abnormal
     Dosage: NDC: 33342-050-44
     Route: 065

REACTIONS (1)
  - Fatigue [Unknown]
